FAERS Safety Report 10728945 (Version 1)
Quarter: 2015Q1

REPORT INFORMATION
  Report Type: Spontaneous
  Country: FR (occurrence: FR)
  Receive Date: 20150122
  Receipt Date: 20150122
  Transmission Date: 20150721
  Serious: Yes (Hospitalization, Other)
  Sender: FDA-Public Use
  Company Number: FR-BRISTOL-MYERS SQUIBB COMPANY-BMS-2015-001987

PATIENT
  Age: 50 Year
  Sex: Male
  Weight: 59 kg

DRUGS (5)
  1. AVLOCARDYL                         /00030001/ [Concomitant]
     Active Substance: PROPRANOLOL HYDROCHLORIDE
  2. COUMADINE [Suspect]
     Active Substance: WARFARIN SODIUM
     Indication: PRODUCT USED FOR UNKNOWN INDICATION
     Route: 065
  3. URSOLVAN [Concomitant]
     Active Substance: URSODIOL
  4. ADVAGRAF [Concomitant]
     Active Substance: TACROLIMUS
  5. INEXIUM                            /01479302/ [Concomitant]
     Active Substance: ESOMEPRAZOLE MAGNESIUM

REACTIONS (4)
  - Sepsis [Unknown]
  - Muscle haemorrhage [Recovering/Resolving]
  - Hypoaesthesia [Unknown]
  - Overdose [Unknown]

NARRATIVE: CASE EVENT DATE: 201408
